FAERS Safety Report 9524870 (Version 1)
Quarter: 2013Q3

REPORT INFORMATION
  Report Type: Spontaneous
  Country: FR (occurrence: FR)
  Receive Date: 20130916
  Receipt Date: 20130916
  Transmission Date: 20140515
  Serious: Yes (Other)
  Sender: FDA-Public Use
  Company Number: FR-ROCHE-1273996

PATIENT
  Sex: Female

DRUGS (10)
  1. LUCENTIS [Suspect]
     Indication: AGE-RELATED MACULAR DEGENERATION
     Route: 050
     Dates: start: 20121213
  2. LUCENTIS [Suspect]
     Route: 050
     Dates: start: 201301
  3. LUCENTIS [Suspect]
     Route: 050
     Dates: start: 201303
  4. LUCENTIS [Suspect]
     Route: 050
     Dates: start: 20130510
  5. LUCENTIS [Suspect]
     Route: 050
     Dates: start: 20130628
  6. OROCAL D3 [Concomitant]
     Dosage: DOSE: 500 MG/200 IU
     Route: 048
     Dates: start: 2005
  7. BISOPROLOL FUMARATE/HYDROCHLOROTHIAZIDE [Concomitant]
     Dosage: DOSE: 5/6.25 MG
     Route: 048
     Dates: start: 2009
  8. HYDROCHLOROTHIAZIDE [Concomitant]
     Indication: PAIN
     Route: 065
  9. PARACETAMOL [Concomitant]
     Indication: PAIN
     Route: 065
  10. STRONTIUM RANELATE [Concomitant]
     Dosage: DRUG REPORTED AS PROTELOS
     Route: 048

REACTIONS (4)
  - Sensory disturbance [Unknown]
  - Hypoaesthesia [Recovered/Resolved]
  - Paraesthesia [Recovered/Resolved]
  - Visual impairment [Unknown]
